FAERS Safety Report 6127499-7 (Version None)
Quarter: 2009Q1

REPORT INFORMATION
  Report Type: 
  Country: None (occurrence: None)
  Receive Date: 20090323
  Receipt Date: 20090312
  Transmission Date: 20090719
  Serious: Yes (Life-Threatening)
  Sender: FDA-Public Use
  Company Number: GB-CELGENEUS-167-20484-09030748

PATIENT
  Sex: Female

DRUGS (8)
  1. INNOHEP [Suspect]
     Indication: THROMBOSIS PROPHYLAXIS
     Route: 058
     Dates: start: 20090112, end: 20090112
  2. DIGOXIN [Concomitant]
     Route: 065
  3. FUROSEMIDE [Concomitant]
     Route: 065
  4. AMILORIDE HYDROCHLORIDE [Concomitant]
     Route: 065
  5. CLOBAZAM [Concomitant]
     Indication: EPILEPSY
     Route: 065
  6. EPILIM [Concomitant]
     Indication: EPILEPSY
     Route: 065
  7. THYROXIN [Concomitant]
     Indication: HYPOTHYROIDISM
     Route: 065
  8. WARFARIN [Concomitant]
     Indication: ANTICOAGULANT THERAPY
     Dosage: INTERRUPTED DUE TO SURGICAL PROCEDURE
     Route: 065

REACTIONS (1)
  - ANGIOEDEMA [None]
